FAERS Safety Report 5818000-3 (Version None)
Quarter: 2008Q3

REPORT INFORMATION
  Report Type: 
  Country: None (occurrence: None)
  Receive Date: 20080722
  Receipt Date: 20080707
  Transmission Date: 20090109
  Serious: No
  Sender: FDA-Public Use
  Company Number: US-BOEHRINGER INGELHEIM GMBH, GERMANY-2008-BP-10596BP

PATIENT
  Sex: Female

DRUGS (3)
  1. SPIRIVA [Suspect]
     Route: 055
     Dates: start: 20080407
  2. FUROSEMIDE [Concomitant]
     Route: 048
  3. MAXAIR [Concomitant]
     Indication: DYSPNOEA
     Route: 055
     Dates: start: 20030101

REACTIONS (2)
  - CANDIDIASIS [None]
  - TONGUE DISCOLOURATION [None]
